FAERS Safety Report 4733391-2 (Version None)
Quarter: 2005Q3

REPORT INFORMATION
  Report Type: 
  Country: None (occurrence: None)
  Receive Date: 20050801
  Receipt Date: 20050801
  Transmission Date: 20060218
  Serious: Yes (Life-Threatening)
  Sender: FDA-Public Use
  Company Number: None

PATIENT
  Age: 61 Year
  Sex: Male

DRUGS (3)
  1. VASOTEC [Suspect]
  2. LISINOPRIL [Suspect]
  3. POTASSIUM CHLORIDE [Suspect]

REACTIONS (2)
  - FALL [None]
  - UPPER LIMB FRACTURE [None]
